FAERS Safety Report 5324605-9 (Version None)
Quarter: 2007Q2

REPORT INFORMATION
  Report Type: 
  Country: None (occurrence: None)
  Receive Date: 20070508
  Receipt Date: 20070424
  Transmission Date: 20071010
  Serious: Yes (Death)
  Sender: FDA-Public Use
  Company Number: 155745ISR

PATIENT
  Age: 56 Year
  Sex: Female

DRUGS (3)
  1. CISPLATIN [Suspect]
     Indication: NASAL SINUS CANCER
     Dosage: 127 MG INTRAVENOUS (NOT OTHERWISE SPECIFIED)
     Route: 042
     Dates: start: 20070126, end: 20070223
  2. DOCETAXEL [Suspect]
     Indication: NASAL SINUS CANCER
     Dosage: INTRAVENOUS (NOT OTHERWISE SPECIFIED)
     Route: 042
     Dates: start: 20070126, end: 20070223
  3. FLUOROURACIL [Suspect]
     Indication: NASAL SINUS CANCER
     Dosage: 1275 MG INTRAVENOUS (NOT OTHERWISE SPECIFIED)
     Route: 042
     Dates: start: 20070126, end: 20070223

REACTIONS (2)
  - CLOSTRIDIUM DIFFICILE COLITIS [None]
  - DRUG TOXICITY [None]
